FAERS Safety Report 14687306 (Version 3)
Quarter: 2018Q2

REPORT INFORMATION
  Report Type: Report from Study
  Country: None (occurrence: BE)
  Receive Date: 20180328
  Receipt Date: 20180516
  Transmission Date: 20180711
  Serious: Yes (Hospitalization)
  Sender: FDA-Public Use
  Company Number: BE-ABBVIE-18K-013-2300468-00

PATIENT
  Sex: Male

DRUGS (17)
  1. STALEVO 150 [Concomitant]
     Indication: PARKINSON^S DISEASE
     Dosage: FORM STRENGTH: 150MG/37.5MG/200MG; 1 UNIT
     Route: 048
  2. DUODOPA [Suspect]
     Active Substance: CARBIDOPA\LEVODOPA
     Dosage: MD: 9 ML?CD=3.1ML/HR DURING 16HRS?ED=1.5ML
     Route: 050
     Dates: start: 20180326, end: 20180417
  3. DUODOPA [Suspect]
     Active Substance: CARBIDOPA\LEVODOPA
     Dosage: MD=9 ML?CD= 3.7ML/HR DURING 16HRS?ED= 1.5 ML
     Route: 050
     Dates: start: 20180417, end: 20180511
  4. PROLOPA 125 HBS [Concomitant]
     Indication: PRODUCT USED FOR UNKNOWN INDICATION
     Dosage: FORM STRENGTH: 100MG/25MG
     Route: 048
  5. STALEVO 100 [Concomitant]
     Indication: PARKINSON^S DISEASE
     Dosage: FORM STRENGTH: 100MG/25MG/200MG; 1 UNIT
  6. AZILECT [Concomitant]
     Active Substance: RASAGILINE MESYLATE
  7. DUODOPA [Suspect]
     Active Substance: CARBIDOPA\LEVODOPA
     Dosage: DOSES CONTINUOUSLY MONITORED AND ADAPTED
     Route: 050
     Dates: start: 20171117, end: 20180315
  8. PROLOPA 125 HBS [Concomitant]
     Dosage: FORM STRENGTH: 100MG/25MG; UNIT DOSE: 1 UNIT
     Route: 048
  9. STALEVO [Concomitant]
     Active Substance: CARBIDOPA\ENTACAPONE\LEVODOPA
     Indication: PRODUCT USED FOR UNKNOWN INDICATION
  10. ASAFLOW [Concomitant]
     Active Substance: ASPIRIN
     Indication: PRODUCT USED FOR UNKNOWN INDICATION
  11. STALEVO 150 [Concomitant]
     Dosage: FORM STRENGTH: 150MG/37.5MG/200MG
  12. AZILECT [Concomitant]
     Active Substance: RASAGILINE MESYLATE
     Indication: PARKINSON^S DISEASE
     Route: 048
  13. DUODOPA [Suspect]
     Active Substance: CARBIDOPA\LEVODOPA
     Dosage: MD: 9 ML??CD: 3.4 ML/HR DURING 16 HRS??ED: 1.5 ML
     Route: 050
     Dates: start: 20180315, end: 20180326
  14. DUODOPA [Suspect]
     Active Substance: CARBIDOPA\LEVODOPA
     Indication: PARKINSON^S DISEASE
     Dosage: MD: 8 ML??CD: 3.3 ML/HR DURING 16 HRS??ED: 1.5 ML
     Route: 050
     Dates: start: 20171113, end: 20171117
  15. DUODOPA [Suspect]
     Active Substance: CARBIDOPA\LEVODOPA
     Dosage: MD=9ML?CD=3.5ML/HR DURING 16HRS?ED=1.5ML
     Route: 050
     Dates: start: 20180511
  16. STALEVO 100 [Concomitant]
     Dosage: FORM STRENGTH: 100MG/25MG/200MG;
  17. ASAFLOW [Concomitant]
     Active Substance: ASPIRIN

REACTIONS (4)
  - Physical disability [Unknown]
  - Pubis fracture [Unknown]
  - Fall [Recovered/Resolved]
  - Confusional state [Unknown]

NARRATIVE: CASE EVENT DATE: 2018
